FAERS Safety Report 5153903-7 (Version None)
Quarter: 2006Q4

REPORT INFORMATION
  Report Type: 
  Country: None (occurrence: None)
  Receive Date: 20061120
  Receipt Date: 20060116
  Transmission Date: 20070319
  Serious: Yes (Other)
  Sender: FDA-Public Use
  Company Number: US-BAYER-200610286BWH

PATIENT
  Age: 57 Year
  Sex: Male
  Weight: 76 kg

DRUGS (2)
  1. SORAFENIB [Suspect]
     Indication: METASTATIC RENAL CELL CARCINOMA
     Dosage: UNIT DOSE: 200 MG
     Route: 048
     Dates: start: 20050913
  2. HYDROCODONE [Concomitant]
     Indication: PAIN
     Route: 048
     Dates: start: 20050922

REACTIONS (1)
  - SQUAMOUS CELL CARCINOMA OF SKIN [None]
